FAERS Safety Report 8886739 (Version 1)
Quarter: 2012Q4

REPORT INFORMATION
  Report Type: 
  Country: CA (occurrence: CA)
  Receive Date: 20121105
  Receipt Date: 20121105
  Transmission Date: 20130627
  Serious: Yes (Hospitalization, Other)
  Sender: FDA-Public Use
  Company Number: PHHY2012CA100064

PATIENT
  Age: 87 Year
  Sex: Male

DRUGS (3)
  1. TEGRETOL [Suspect]
     Dosage: 2 DF, daily
  2. LORAZEPAM [Concomitant]
  3. SENOKOT-S [Concomitant]

REACTIONS (3)
  - Inappropriate antidiuretic hormone secretion [Unknown]
  - Muscular weakness [Unknown]
  - Dizziness [Unknown]
